FAERS Safety Report 15886516 (Version 1)
Quarter: 2019Q1

REPORT INFORMATION
  Report Type: Spontaneous
  Country: FR (occurrence: FR)
  Receive Date: 20190129
  Receipt Date: 20190129
  Transmission Date: 20190417
  Serious: Yes (Death, Other)
  Sender: FDA-Public Use
  Company Number: PHHY2019FR019279

PATIENT
  Age: 66 Year
  Sex: Male

DRUGS (2)
  1. TACROLIMUS. [Suspect]
     Active Substance: TACROLIMUS
     Indication: LUNG TRANSPLANT
     Dosage: UNK
     Route: 065
  2. TACROLIMUS. [Suspect]
     Active Substance: TACROLIMUS
     Indication: IMMUNOSUPPRESSANT DRUG THERAPY
     Dosage: 5-7 NG/ML, UNK
     Route: 065

REACTIONS (7)
  - Device related infection [Fatal]
  - Complications of transplanted lung [Unknown]
  - Product use in unapproved indication [Unknown]
  - Alveolar proteinosis [Fatal]
  - Sepsis [Fatal]
  - Liver transplant rejection [Unknown]
  - Pneumonia [Fatal]
